FAERS Safety Report 20189240 (Version 1)
Quarter: 2021Q4

REPORT INFORMATION
  Report Type: Spontaneous
  Country: US (occurrence: US)
  Receive Date: 20211215
  Receipt Date: 20211215
  Transmission Date: 20220303
  Serious: No
  Sender: FDA-Public Use
  Company Number: US-CELGENE-USA-20211202300

PATIENT
  Age: 82 Year
  Sex: Male
  Weight: 67.192 kg

DRUGS (2)
  1. REVLIMID [Suspect]
     Active Substance: LENALIDOMIDE
     Indication: Diffuse large B-cell lymphoma
     Dosage: 25 MILLIGRAM
     Route: 048
     Dates: start: 20210225
  2. REVLIMID [Suspect]
     Active Substance: LENALIDOMIDE
     Indication: Off label use

REACTIONS (1)
  - Muscular weakness [Recovered/Resolved with Sequelae]

NARRATIVE: CASE EVENT DATE: 20211101
